FAERS Safety Report 5197895-3 (Version None)
Quarter: 2007Q1

REPORT INFORMATION
  Report Type: 
  Country: None (occurrence: None)
  Receive Date: 20070103
  Receipt Date: 20061226
  Transmission Date: 20070707
  Serious: Yes (Hospitalization)
  Sender: FDA-Public Use
  Company Number: JP-ELI_LILLY_AND_COMPANY-JP200612004167

PATIENT
  Age: 74 Year
  Sex: Female
  Weight: 44 kg

DRUGS (2)
  1. RALOXIFENE HCL [Suspect]
     Indication: OSTEOPOROSIS POSTMENOPAUSAL
     Dosage: 60 MG, DAILY (1/D)
     Route: 048
     Dates: start: 20050223
  2. DEPAS [Concomitant]
     Indication: ANXIETY DISORDER
     Dosage: 1 MG, DAILY (1/D)
     Route: 048

REACTIONS (1)
  - OVARIAN CANCER RECURRENT [None]
